FAERS Safety Report 8350320-3 (Version None)
Quarter: 2012Q2

REPORT INFORMATION
  Report Type: 
  Country: None (occurrence: None)
  Receive Date: 20120510
  Receipt Date: 20120426
  Transmission Date: 20120825
  Serious: Yes (Other)
  Sender: FDA-Public Use
  Company Number: US-ROCHE-1066453

PATIENT
  Sex: Female

DRUGS (10)
  1. PEGASYS [Suspect]
     Indication: HEPATITIS C
     Route: 058
     Dates: start: 20110919, end: 20111001
  2. COPEGUS [Suspect]
     Indication: HEPATITIS C
     Route: 048
     Dates: start: 20110919, end: 20111003
  3. PEGASYS [Suspect]
     Dates: start: 20111031
  4. ACETAMINOPHEN [Suspect]
     Indication: HEPATITIS C
     Dates: start: 20111015, end: 20111015
  5. AMBIEN [Concomitant]
     Dates: start: 20110921, end: 20111012
  6. BLINDED ALISPORIVIR [Suspect]
     Indication: HEPATITIS C
     Route: 048
     Dates: start: 20110919, end: 20111003
  7. COPEGUS [Suspect]
     Route: 048
     Dates: start: 20111031
  8. IBUPROFEN [Concomitant]
     Dates: start: 20110930, end: 20110930
  9. PEPCID [Concomitant]
     Dates: start: 20111017, end: 20111017
  10. XENADERM [Concomitant]

REACTIONS (3)
  - THROMBOCYTOPENIA [None]
  - HEPATOSPLENOMEGALY [None]
  - DISEASE PROGRESSION [None]
